FAERS Safety Report 10515557 (Version 1)
Quarter: 2014Q4

REPORT INFORMATION
  Report Type: Spontaneous
  Country: US (occurrence: None)
  Receive Date: 20141009
  Receipt Date: 20141009
  Transmission Date: 20150528
  Serious: Yes (Other)
  Sender: FDA-Public Use
  Company Number: COL_17956_2014

PATIENT
  Age: 37 Year
  Sex: Male

DRUGS (1)
  1. COLGATE TOTAL FRESHMINT [Suspect]
     Active Substance: CETYLPYRIDINIUM CHLORIDE
     Indication: PRODUCT USED FOR UNKNOWN INDICATION
     Route: 048
     Dates: start: 20140828, end: 2014

REACTIONS (7)
  - Swollen tongue [None]
  - Infection [None]
  - Glossodynia [None]
  - Ageusia [None]
  - Hypersensitivity [None]
  - Throat irritation [None]
  - Gingival swelling [None]

NARRATIVE: CASE EVENT DATE: 20140829
